FAERS Safety Report 20219269 (Version 1)
Quarter: 2021Q4

REPORT INFORMATION
  Report Type: Spontaneous
  Country: JP (occurrence: JP)
  Receive Date: 20211222
  Receipt Date: 20211222
  Transmission Date: 20220303
  Serious: No
  Sender: FDA-Public Use
  Company Number: JP-LUPIN PHARMACEUTICALS INC.-2021-25032

PATIENT
  Age: 33 Year
  Sex: Female

DRUGS (8)
  1. CEFTRIAXONE [Suspect]
     Active Substance: CEFTRIAXONE
     Indication: COVID-19 pneumonia
     Dosage: STARTED ON DAY 1 OF THE ADMISSION, THERAPY COMPLETED
     Route: 065
  2. FAVIPIRAVIR [Suspect]
     Active Substance: FAVIPIRAVIR
     Indication: COVID-19 pneumonia
     Dosage: STARTED ON DAY 1 OF THE ADMISSION, THERAPY COMPLETED
     Route: 065
  3. THROMBOMODULIN ALFA [Suspect]
     Active Substance: THROMBOMODULIN ALFA
     Indication: COVID-19 pneumonia
     Dosage: UNK (STARTED ON DAY 1 OF THE ADMISSION, THERAPY COMPLETED)
     Route: 065
  4. HEPARIN SODIUM [Concomitant]
     Active Substance: HEPARIN SODIUM
     Indication: Anticoagulant therapy
     Dosage: STARTED ON DAY 1 OF THE ADMISSION, THERAPY COMPLETED
     Route: 065
  5. INSULIN NOS [Concomitant]
     Active Substance: INSULIN NOS
     Indication: Diabetic ketoacidosis
     Dosage: RECEIVED CONTINUOUS IV INSULIN INFUSION, RECEIVED 2 UNITS/HOUR FOR 14 DAYS, INFUSION
     Route: 042
  6. INSULIN NOS [Concomitant]
     Active Substance: INSULIN NOS
     Dosage: RECEIVED BASAL-BOLUS INSULIN FROM DAY 16 OF ADMISSION, BOLUS
     Route: 042
  7. SODIUM BICARBONATE [Concomitant]
     Active Substance: SODIUM BICARBONATE
     Indication: Respiratory acidosis
     Dosage: RECEIVED CONTINUOUS HAEMODIAFILTRATION (CHDF) WITH SODIUM BICARBONATE INFUSION
     Route: 065
  8. SODIUM BICARBONATE [Concomitant]
     Active Substance: SODIUM BICARBONATE
     Indication: Diabetic ketoacidosis

REACTIONS (1)
  - Off label use [Unknown]
